FAERS Safety Report 4584839-8 (Version None)
Quarter: 2005Q1

REPORT INFORMATION
  Report Type: 
  Country: None (occurrence: None)
  Receive Date: 20050214
  Receipt Date: 20040920
  Transmission Date: 20050727
  Serious: Yes (Hospitalization)
  Sender: FDA-Public Use
  Company Number: 05-069

PATIENT
  Sex: Female

DRUGS (2)
  1. DEXAMETHASONE [Suspect]
     Indication: MULTIPLE MYELOMA
     Dosage: 40MG DAILY X4
     Dates: start: 20020126, end: 20020212
  2. GENASENSE [Concomitant]

REACTIONS (4)
  - BLOOD UREA NITROGEN/CREATININE RATIO INCREASED [None]
  - GASTROINTESTINAL CARCINOMA IN SITU [None]
  - GASTROINTESTINAL HAEMORRHAGE [None]
  - GASTROINTESTINAL TRACT ADENOMA [None]
